FAERS Safety Report 10690505 (Version 1)
Quarter: 2015Q1

REPORT INFORMATION
  Report Type: Spontaneous
  Country: CA (occurrence: None)
  Receive Date: 20150102
  Receipt Date: 20150102
  Transmission Date: 20150720
  Serious: Yes (Death, Hospitalization, Other)
  Sender: FDA-Public Use
  Company Number: CA-ZYDUS-006171

PATIENT
  Age: 61 Year
  Sex: Female

DRUGS (8)
  1. MINOCYCLINE [Suspect]
     Active Substance: MINOCYCLINE\MINOCYCLINE HYDROCHLORIDE
     Route: 048
  2. COLCHICINE (COLCHICINE) [Suspect]
     Active Substance: COLCHICINE
     Route: 048
  3. PREDNISOLONE (PREDNISOLONE) [Suspect]
     Active Substance: PREDNISOLONE
     Route: 048
  4. IMMUNE GLOBULIN [Suspect]
     Active Substance: HUMAN IMMUNOGLOBULIN G
  5. AZATHIOPRINE (AZATHIOPRINE) [Suspect]
     Active Substance: AZATHIOPRINE
     Indication: MYASTHENIA GRAVIS
     Route: 048
  6. CICLOSPORIN (CICLOSPORIN) [Suspect]
     Active Substance: CYCLOSPORINE
  7. HYDROCORTISONE (HYDROCORTISONE) [Suspect]
     Active Substance: HYDROCORTISONE
     Dosage: 50MG ONE TIMES PER 6 HOURS
  8. PREDNISONE (PREDNISONE) [Suspect]
     Active Substance: PREDNISONE
     Indication: PYODERMA GANGRENOSUM
     Route: 048

REACTIONS (12)
  - Disseminated intravascular coagulation [None]
  - Septic shock [None]
  - Urinary tract infection [None]
  - Pulmonary mass [None]
  - Treatment failure [None]
  - Enterococcal sepsis [None]
  - Acute hepatic failure [None]
  - Pancytopenia [None]
  - Pyoderma gangrenosum [None]
  - Condition aggravated [None]
  - Pulmonary necrosis [None]
  - General physical health deterioration [None]
